FAERS Safety Report 24624338 (Version 2)
Quarter: 2025Q3

REPORT INFORMATION
  Report Type: Report from Study
  Country: IN (occurrence: IN)
  Receive Date: 20241115
  Receipt Date: 20250809
  Transmission Date: 20251021
  Serious: Yes (Hospitalization)
  Sender: ALEXION PHARMACEUTICALS
  Company Number: IN-AstraZeneca-CH-00742932A

PATIENT
  Age: 52 Year
  Sex: Male

DRUGS (15)
  1. OSIMERTINIB [Suspect]
     Active Substance: OSIMERTINIB
     Indication: Metastatic neoplasm
     Dosage: 80 MILLIGRAM, QD
  2. DULOXETINE [Concomitant]
     Active Substance: DULOXETINE
     Route: 065
  3. FENTANYL [Concomitant]
     Active Substance: FENTANYL
     Route: 065
  4. MORPHINE [Concomitant]
     Active Substance: MORPHINE
     Route: 065
  5. Supracal [Concomitant]
  6. VITAMINS [Concomitant]
     Active Substance: VITAMINS
     Route: 065
  7. Dexa [Concomitant]
     Route: 065
  8. Quicobal [Concomitant]
     Route: 065
  9. FOLVITE [Concomitant]
     Active Substance: FOLIC ACID
     Route: 065
  10. Cremaffin [Concomitant]
     Route: 065
  11. NEUROBION FORTE [Concomitant]
     Active Substance: CYANOCOBALAMIN\PYRIDOXINE HYDROCHLORIDE\THIAMINE DISULFIDE
  12. GABA [Concomitant]
     Active Substance: HOMEOPATHICS
     Route: 065
  13. DULOXETINE [Concomitant]
     Active Substance: DULOXETINE
     Route: 065
  14. Calmiton [Concomitant]
  15. LIDOCAINE [Concomitant]
     Active Substance: LIDOCAINE
     Route: 065

REACTIONS (2)
  - Nerve compression [Recovered/Resolved with Sequelae]
  - Back pain [Recovered/Resolved with Sequelae]
